FAERS Safety Report 4696960-4 (Version None)
Quarter: 2005Q2

REPORT INFORMATION
  Report Type: 
  Country: None (occurrence: None)
  Receive Date: 20050620
  Receipt Date: 20050225
  Transmission Date: 20051028
  Serious: No
  Sender: FDA-Public Use
  Company Number: US-YAMANOUCHI-YPA20050074

PATIENT
  Age: 81 Year
  Sex: Female
  Weight: 73.9363 kg

DRUGS (11)
  1. VESICARE [Suspect]
     Indication: INCONTINENCE
     Dosage: 5 MG DAILY PO
     Route: 048
     Dates: start: 20050224
  2. VESICARE [Suspect]
     Indication: URINARY INCONTINENCE
     Dosage: 5 MG DAILY PO
     Route: 048
     Dates: start: 20050224
  3. GEMFIBROZIL [Concomitant]
  4. METFORMIN [Concomitant]
  5. GLIPIZIDE [Concomitant]
  6. LISINOPRIL [Concomitant]
  7. NORVASC [Concomitant]
  8. NEURONTIN [Concomitant]
  9. PAXIL [Concomitant]
  10. CELEBREX [Concomitant]
  11. VICODIN [Concomitant]

REACTIONS (1)
  - BLOOD GLUCOSE INCREASED [None]
